FAERS Safety Report 15687928 (Version 1)
Quarter: 2018Q4

REPORT INFORMATION
  Report Type: Spontaneous
  Country: US (occurrence: US)
  Receive Date: 20181205
  Receipt Date: 20181205
  Transmission Date: 20190205
  Serious: Yes (Other)
  Sender: FDA-Public Use
  Company Number: US-ROCHE-2192932

PATIENT
  Sex: Female

DRUGS (1)
  1. ACTIVASE [Suspect]
     Active Substance: ALTEPLASE
     Indication: CEREBROVASCULAR ACCIDENT
     Dosage: ONGOING: UNKNOWN
     Route: 065
     Dates: start: 201809

REACTIONS (3)
  - Haemorrhagic transformation stroke [Unknown]
  - Condition aggravated [Unknown]
  - Haemorrhage intracranial [Unknown]
